FAERS Safety Report 23497299 (Version 1)
Quarter: 2024Q1

REPORT INFORMATION
  Report Type: Report from Study
  Country: JP (occurrence: JP)
  Receive Date: 20240208
  Receipt Date: 20240208
  Transmission Date: 20240409
  Serious: Yes (Death)
  Sender: FDA-Public Use
  Company Number: JP-ABBVIE-5628346

PATIENT
  Age: 57 Year
  Sex: Female

DRUGS (24)
  1. VENCLEXTA [Suspect]
     Active Substance: VENETOCLAX
     Indication: Acute myeloid leukaemia
     Dosage: 200 MILLIGRAM
     Route: 048
     Dates: start: 20220929, end: 20221024
  2. VENCLEXTA [Suspect]
     Active Substance: VENETOCLAX
     Indication: Acute myeloid leukaemia
     Dosage: 200 MILLIGRAM
     Route: 048
     Dates: start: 20221206, end: 20230103
  3. VENCLEXTA [Suspect]
     Active Substance: VENETOCLAX
     Indication: Acute myeloid leukaemia
     Dosage: 200 MILLIGRAM
     Route: 048
     Dates: start: 20221108, end: 20221121
  4. VENCLEXTA [Suspect]
     Active Substance: VENETOCLAX
     Indication: Acute myeloid leukaemia
     Dosage: 100 MILLIGRAM
     Route: 048
     Dates: start: 20220928, end: 20220928
  5. VENCLEXTA [Suspect]
     Active Substance: VENETOCLAX
     Indication: Acute myeloid leukaemia
     Dosage: 50 MILLIGRAM
     Route: 048
     Dates: start: 20220927, end: 20220927
  6. VENCLEXTA [Suspect]
     Active Substance: VENETOCLAX
     Indication: Acute myeloid leukaemia
     Dosage: 200 MILLIGRAM
     Route: 048
     Dates: start: 20230104, end: 20230126
  7. LEVOFLOXACIN [Concomitant]
     Active Substance: LEVOFLOXACIN
     Indication: Infection prophylaxis
     Route: 048
     Dates: start: 20220922, end: 20220926
  8. EVUSHELD [Concomitant]
     Active Substance: CILGAVIMAB\TIXAGEVIMAB
     Indication: COVID-19 prophylaxis
     Route: 030
     Dates: start: 20221202, end: 20221202
  9. AZACITIDINE [Concomitant]
     Active Substance: AZACITIDINE
     Indication: Acute myeloid leukaemia
     Dosage: 68 MG/M2
     Dates: start: 20221206, end: 20221210
  10. AZACITIDINE [Concomitant]
     Active Substance: AZACITIDINE
     Indication: Acute myeloid leukaemia
     Dosage: 68 MG/M2
     Dates: start: 20230110, end: 20230113
  11. AZACITIDINE [Concomitant]
     Active Substance: AZACITIDINE
     Indication: Acute myeloid leukaemia
     Dosage: 68 MG/M2
     Dates: start: 20221212, end: 20221214
  12. AZACITIDINE [Concomitant]
     Active Substance: AZACITIDINE
     Indication: Acute myeloid leukaemia
     Dosage: 68 MG/M2
     Dates: start: 20230104, end: 20230107
  13. AZACITIDINE [Concomitant]
     Active Substance: AZACITIDINE
     Indication: Acute myeloid leukaemia
     Dosage: 74 MG/M2
     Dates: start: 20220927, end: 20221003
  14. AZACITIDINE [Concomitant]
     Active Substance: AZACITIDINE
     Indication: Acute myeloid leukaemia
     Dosage: 68 MG/M2
     Dates: start: 20221108, end: 20221114
  15. FLUCONAZOLE [Concomitant]
     Active Substance: FLUCONAZOLE
     Indication: Infection prophylaxis
     Route: 048
     Dates: start: 20220927, end: 20230127
  16. LEVOFLOXACIN [Concomitant]
     Active Substance: LEVOFLOXACIN
     Indication: Infection prophylaxis
     Route: 048
     Dates: start: 20220927, end: 20221031
  17. LEVOFLOXACIN [Concomitant]
     Active Substance: LEVOFLOXACIN
     Indication: Infection prophylaxis
     Route: 048
     Dates: start: 20230127, end: 20230208
  18. ATOVAQUONE [Concomitant]
     Active Substance: ATOVAQUONE
     Indication: Infection prophylaxis
     Route: 048
     Dates: start: 20221025, end: 20230208
  19. Pegfilgrastim imedic [Concomitant]
     Indication: Neutrophil count decreased
     Route: 058
     Dates: start: 20221122, end: 20221122
  20. Pegfilgrastim imedic [Concomitant]
     Indication: Neutrophil count decreased
     Route: 058
     Dates: start: 20230116, end: 20230116
  21. Pegfilgrastim imedic [Concomitant]
     Indication: Neutrophil count decreased
     Route: 058
     Dates: start: 20221220, end: 20221220
  22. POSACONAZOLE [Concomitant]
     Active Substance: POSACONAZOLE
     Indication: Neutrophil count decreased
     Route: 048
     Dates: start: 20230127, end: 20230208
  23. VALACYCLOVIR HYDROCHLORIDE [Concomitant]
     Active Substance: VALACYCLOVIR HYDROCHLORIDE
     Indication: Neutrophil count decreased
     Route: 048
     Dates: start: 20230201, end: 20230208
  24. SULFAMETHOXAZOLE AND TRIMETHOPRIM [Concomitant]
     Active Substance: SULFAMETHOXAZOLE\TRIMETHOPRIM
     Indication: Neutrophil count decreased
     Route: 048
     Dates: start: 20220930, end: 20221028

REACTIONS (2)
  - Acute myeloid leukaemia [Fatal]
  - Blood test abnormal [Unknown]

NARRATIVE: CASE EVENT DATE: 20221101
